FAERS Safety Report 4854523-1 (Version None)
Quarter: 2005Q4

REPORT INFORMATION
  Report Type: 
  Country: None (occurrence: None)
  Receive Date: 20051213
  Receipt Date: 20051202
  Transmission Date: 20060501
  Serious: Yes (Disabling)
  Sender: FDA-Public Use
  Company Number: 2005152414

PATIENT
  Age: 40 Year
  Sex: Female
  Weight: 56 kg

DRUGS (1)
  1. ZOLOFT [Suspect]
     Indication: GENERALISED ANXIETY DISORDER
     Dosage: 50 MG (50 MG, 1 IN 1 D) ORAL
     Route: 048
     Dates: end: 20051021

REACTIONS (4)
  - CHEST PAIN [None]
  - ELECTROCARDIOGRAM T WAVE INVERSION [None]
  - HEADACHE [None]
  - PAIN IN JAW [None]
